FAERS Safety Report 4878504-7 (Version None)
Quarter: 2006Q1

REPORT INFORMATION
  Report Type: 
  Country: None (occurrence: None)
  Receive Date: 20060110
  Receipt Date: 20060110
  Transmission Date: 20060701
  Serious: Yes (Hospitalization)
  Sender: FDA-Public Use
  Company Number: None

PATIENT
  Sex: Female
  Weight: 60.9 kg

DRUGS (6)
  1. PACLITAXEL [Suspect]
     Indication: BLADDER CANCER
     Dosage: 200 MG/M2. D1, IV
     Route: 042
     Dates: start: 20050908
  2. CARBOPLATIN [Suspect]
     Indication: BLADDER CANCER
     Dosage: 320 MG, D1, IV
     Route: 042
     Dates: start: 20050908
  3. GEMCITABINE [Suspect]
     Indication: BLADDER CANCER
     Dosage: 800 MG/M2, D1, 8, IV
     Route: 042
     Dates: start: 20050908
  4. NORVASC [Concomitant]
  5. LIPITOR [Concomitant]
  6. ASPIRIN [Concomitant]

REACTIONS (2)
  - PERIPHERAL ISCHAEMIA [None]
  - THROMBOEMBOLECTOMY [None]
